FAERS Safety Report 9286973 (Version 1)
Quarter: 2013Q2

REPORT INFORMATION
  Report Type: Spontaneous
  Country: US (occurrence: US)
  Receive Date: 20130513
  Receipt Date: 20130513
  Transmission Date: 20140414
  Serious: Yes (Hospitalization, Other)
  Sender: FDA-Public Use
  Company Number: US-B.I. PHARMACEUTICALS,INC./RIDGEFIELD-2013-BI-12912BP

PATIENT
  Age: 61 Year
  Sex: Female
  Weight: 69 kg

DRUGS (7)
  1. MICARDIS [Suspect]
     Indication: HYPERTENSION
     Dosage: 20 MG
     Route: 048
     Dates: start: 201303
  2. GLIPIZIDE [Concomitant]
     Indication: TYPE 2 DIABETES MELLITUS
     Dosage: 4 MG
     Route: 048
     Dates: start: 201212
  3. PERCOCET [Concomitant]
     Indication: ARTHRALGIA
     Dosage: STRENGTH: 5.0 MG / 325 MG; DAILY DOSE: 2.5 MG / 162.5 MG
     Route: 048
     Dates: start: 201203
  4. XANAX [Concomitant]
     Indication: ANXIETY
     Route: 048
     Dates: start: 201302
  5. METFORMIN [Concomitant]
     Indication: TYPE 2 DIABETES MELLITUS
     Dosage: 2000 MG
     Route: 048
     Dates: start: 2003
  6. MELOXICAM [Concomitant]
     Indication: MUSCULOSKELETAL PAIN
     Dosage: 15 MG
     Route: 048
     Dates: start: 201203
  7. MELOXICAM [Concomitant]
     Indication: ARTHRALGIA

REACTIONS (1)
  - Transient ischaemic attack [Not Recovered/Not Resolved]
